FAERS Safety Report 8828777 (Version 1)
Quarter: 2012Q4

REPORT INFORMATION
  Report Type: 
  Country: CO (occurrence: CO)
  Receive Date: 20121008
  Receipt Date: 20121008
  Transmission Date: 20130627
  Serious: Yes (Hospitalization)
  Sender: FDA-Public Use
  Company Number: CO-GENZYME-FABR-1002784

PATIENT
  Age: 61 Year
  Sex: Male
  Weight: 71.5 kg

DRUGS (1)
  1. FABRAZYME [Suspect]
     Indication: FABRY^S DISEASE
     Dosage: 1.04 mg/kg, UNK
     Route: 042

REACTIONS (3)
  - Lung infection [Not Recovered/Not Resolved]
  - Bacteraemia [Not Recovered/Not Resolved]
  - Back pain [Not Recovered/Not Resolved]
